FAERS Safety Report 24559740 (Version 1)
Quarter: 2024Q4

REPORT INFORMATION
  Report Type: Spontaneous
  Country: TR (occurrence: None)
  Receive Date: 20241029
  Receipt Date: 20241029
  Transmission Date: 20250115
  Serious: Yes (Life-Threatening, Hospitalization)
  Sender: CMP PHARMA
  Company Number: TR-CMPPHARMA-000005

PATIENT
  Age: 15 Year
  Sex: Female

DRUGS (1)
  1. ISONIAZID [Suspect]
     Active Substance: ISONIAZID
     Indication: Product used for unknown indication
     Dosage: INGESTED 45 EXPIRED TABLETS (EQUIVALENT TO 90 MG/KG) IN A SUICIDE ATTEMPT

REACTIONS (8)
  - Hypersensitivity myocarditis [Recovering/Resolving]
  - Intentional overdose [Unknown]
  - Suicide attempt [Unknown]
  - Status epilepticus [Recovering/Resolving]
  - Expired product administered [Unknown]
  - Toxicity to various agents [Recovering/Resolving]
  - Toxic encephalopathy [Recovering/Resolving]
  - Hepatomegaly [Recovered/Resolved]
